FAERS Safety Report 6993457-3 (Version None)
Quarter: 2010Q3

REPORT INFORMATION
  Report Type: 
  Country: None (occurrence: None)
  Receive Date: 20100917
  Receipt Date: 20100615
  Transmission Date: 20110219
  Serious: No
  Sender: FDA-Public Use
  Company Number: US-ASTRAZENECA-2009UW19646

PATIENT
  Sex: Female
  Weight: 77.1 kg

DRUGS (2)
  1. SEROQUEL [Suspect]
     Indication: SLEEP DISORDER
     Route: 048
     Dates: start: 20081201
  2. SEROQUEL [Suspect]
     Route: 048

REACTIONS (13)
  - ACTIVITIES OF DAILY LIVING IMPAIRED [None]
  - AMNESIA [None]
  - APHAGIA [None]
  - CONFUSIONAL STATE [None]
  - CRYING [None]
  - DEPRESSION [None]
  - DIZZINESS [None]
  - DRUG DOSE OMISSION [None]
  - FATIGUE [None]
  - INSOMNIA [None]
  - PALPITATIONS [None]
  - SUICIDAL IDEATION [None]
  - TEARFULNESS [None]
